FAERS Safety Report 6062449-3 (Version None)
Quarter: 2009Q1

REPORT INFORMATION
  Report Type: 
  Country: None (occurrence: None)
  Receive Date: 20090202
  Receipt Date: 20090202
  Transmission Date: 20090719
  Serious: Yes (Hospitalization)
  Sender: FDA-Public Use
  Company Number: None

PATIENT
  Sex: Male
  Weight: 34.0198 kg

DRUGS (7)
  1. BEVACIZUMAB LAST DOSE GIVEN 1125MG [Suspect]
     Indication: RENAL CELL CARCINOMA
     Dosage: 15 MG/KG Q 21 DAYS IV
     Route: 042
     Dates: end: 20090113
  2. BORTEZOMIB LAST DOSE GIVEN 3.5MG [Suspect]
     Indication: RENAL CELL CARCINOMA
     Dosage: 1.8 MG/M2 D1 AND D8 Q 21D IV
     Route: 042
     Dates: end: 20090113
  3. FAMOTINIDE [Concomitant]
  4. DOLASETRON [Concomitant]
  5. DEXAMETHASONE TAB [Concomitant]
  6. BENADRYL [Concomitant]
  7. VICODIN [Concomitant]

REACTIONS (6)
  - ACUTE ABDOMEN [None]
  - HYPOTENSION [None]
  - LARGE INTESTINE PERFORATION [None]
  - LIVER ABSCESS [None]
  - PERITONITIS [None]
  - SEPTIC SHOCK [None]
